FAERS Safety Report 8421355-7 (Version None)
Quarter: 2012Q2

REPORT INFORMATION
  Report Type: 
  Country: None (occurrence: None)
  Receive Date: 20120608
  Receipt Date: 20120601
  Transmission Date: 20120825
  Serious: Yes (Other)
  Sender: FDA-Public Use
  Company Number: PHHY2012AU047442

PATIENT
  Sex: Female

DRUGS (1)
  1. CLOZARIL [Suspect]
     Dosage: 50 MG, UNK
     Dates: start: 20120508, end: 20120523

REACTIONS (5)
  - TACHYCARDIA [None]
  - ELECTROCARDIOGRAM QT PROLONGED [None]
  - URINARY TRACT INFECTION [None]
  - TROPONIN INCREASED [None]
  - PYREXIA [None]
